FAERS Safety Report 17056669 (Version 1)
Quarter: 2019Q4

REPORT INFORMATION
  Report Type: Spontaneous
  Country: US (occurrence: US)
  Receive Date: 20191121
  Receipt Date: 20191121
  Transmission Date: 20200122
  Serious: No
  Sender: FDA-Public Use
  Company Number: US-EVOLUS, INC.-2019EV000313

PATIENT
  Age: 30 Year
  Sex: Female

DRUGS (1)
  1. JEUVEAU [Suspect]
     Active Substance: PRABOTULINUMTOXINA-XVFS
     Indication: SKIN WRINKLING
     Dates: start: 20190801

REACTIONS (2)
  - Eyelids pruritus [Recovered/Resolved]
  - Swelling of eyelid [Recovered/Resolved]

NARRATIVE: CASE EVENT DATE: 20190802
